FAERS Safety Report 7606572-8 (Version None)
Quarter: 2011Q3

REPORT INFORMATION
  Report Type: 
  Country: None (occurrence: None)
  Receive Date: 20110713
  Receipt Date: 20110705
  Transmission Date: 20111222
  Serious: Yes (Hospitalization)
  Sender: FDA-Public Use
  Company Number: PHHO2011FR11616

PATIENT
  Sex: Male
  Weight: 70 kg

DRUGS (11)
  1. ATORVASTATIN CALCIUM [Suspect]
     Dosage: 20 MG, DAILY
     Route: 048
     Dates: start: 20110413
  2. SECTRAL [Concomitant]
  3. ARANESP [Concomitant]
  4. TAMSULOSIN HCL [Concomitant]
  5. FOLIC ACID [Concomitant]
  6. LASIX [Concomitant]
  7. PERINDOPRIL ERBUMINE [Concomitant]
  8. AMLODIPINE BESYLATE [Concomitant]
  9. SANDIMMUNE [Suspect]
     Indication: RENAL TRANSPLANT
     Dosage: UNK
     Route: 048
     Dates: start: 20100904
  10. PREDNISONE [Suspect]
     Dosage: 10 MG, DAILY
     Route: 048
     Dates: start: 20100722
  11. CELLCEPT [Suspect]
     Dosage: 2 G, DAILY
     Route: 048
     Dates: start: 20100721

REACTIONS (4)
  - PNEUMONIA LEGIONELLA [None]
  - RENAL FAILURE ACUTE [None]
  - SEPSIS [None]
  - RENAL TUBULAR NECROSIS [None]
